FAERS Safety Report 4431832-1 (Version None)
Quarter: 2004Q3

REPORT INFORMATION
  Report Type: 
  Country: None (occurrence: None)
  Receive Date: 20040819
  Receipt Date: 20040712
  Transmission Date: 20050211
  Serious: Yes (Death)
  Sender: FDA-Public Use
  Company Number: 2004-UK-00676UK

PATIENT
  Age: 68 Year
  Sex: Male

DRUGS (7)
  1. APIRIVA (14598/0062) (TIOTROPIUM BROMIDE ( (KAI) [Suspect]
     Indication: CHRONIC OBSTRUCTIVE AIRWAYS DISEASE
     Dosage: 18 MCG (18MCG); IH
     Route: 055
     Dates: start: 20030603
  2. SALBUTAMOL (SALBUTAMOL) (NR) [Concomitant]
  3. AMOXYCILLIN (NR) [Concomitant]
  4. SALMETROL (SALMETEROL) (NR) [Concomitant]
  5. COMBIVENT (COMBIVENT) (NR) [Concomitant]
  6. DOXYCYCLINE (DOXYCYCLINE) (NR) [Concomitant]
  7. SOL-PHYLLIN (AMINOPHYLLINE (NR) [Concomitant]

REACTIONS (1)
  - SUDDEN DEATH [None]
